FAERS Safety Report 20721404 (Version 1)
Quarter: 2022Q2

REPORT INFORMATION
  Report Type: Spontaneous
  Country: US (occurrence: US)
  Receive Date: 20220418
  Receipt Date: 20220418
  Transmission Date: 20220721
  Serious: Yes (Hospitalization)
  Sender: FDA-Public Use
  Company Number: US-INNOCOLL PHARMACEUTICALS LIMITED-2022INN00002

PATIENT
  Age: 17 Year
  Sex: Male
  Weight: 76.5 kg

DRUGS (9)
  1. BUPIVACAINE [Suspect]
     Active Substance: BUPIVACAINE
     Indication: Sinus operation
     Dosage: UNK UNK, ONCE
     Route: 065
  2. POSIMIR [Suspect]
     Active Substance: BUPIVACAINE
     Indication: Sinus operation
     Dosage: UNK UNK, ONCE
     Route: 065
  3. PROPOFOL [Concomitant]
     Active Substance: PROPOFOL
     Indication: Sinus operation
     Route: 065
  4. FENTANYL [Concomitant]
     Active Substance: FENTANYL
     Indication: Sinus operation
     Route: 065
  5. LIDOCAINE [Concomitant]
     Active Substance: LIDOCAINE
     Indication: Sinus operation
     Dosage: 3.5 ML
     Route: 065
  6. ROCURONIUM [Concomitant]
     Active Substance: ROCURONIUM BROMIDE
     Indication: Sinus operation
     Route: 065
  7. SEVOFLURANE [Concomitant]
     Active Substance: SEVOFLURANE
     Indication: Sinus operation
     Route: 065
  8. EPINEPHRINE [Concomitant]
     Active Substance: EPINEPHRINE
     Indication: Sinus operation
     Route: 065
  9. OXYMETAZOLINE [Concomitant]
     Active Substance: OXYMETAZOLINE
     Indication: Sinus operation
     Route: 061

REACTIONS (1)
  - Hypertension [Recovered/Resolved]
